FAERS Safety Report 9928836 (Version 1)
Quarter: 2014Q1

REPORT INFORMATION
  Report Type: Spontaneous
  Country: US (occurrence: US)
  Receive Date: 20140227
  Receipt Date: 20140227
  Transmission Date: 20141002
  Serious: No
  Sender: FDA-Public Use
  Company Number: US-PFIZER INC-2014052781

PATIENT
  Age: 17 Year
  Sex: Female
  Weight: 49.89 kg

DRUGS (1)
  1. ADVIL [Suspect]
     Indication: PYREXIA
     Dosage: ONE TABLET, ONCE
     Route: 048
     Dates: start: 20140221, end: 20140221

REACTIONS (1)
  - Foreign body [Unknown]
